FAERS Safety Report 21330689 (Version 1)
Quarter: 2022Q3

REPORT INFORMATION
  Report Type: Spontaneous
  Country: JP (occurrence: JP)
  Receive Date: 20220913
  Receipt Date: 20220913
  Transmission Date: 20221026
  Serious: Yes (Other)
  Sender: FDA-Public Use
  Company Number: JP-NOVARTISPH-NVSJ2022JP096648

PATIENT
  Age: 40 Year
  Sex: Female

DRUGS (1)
  1. COSENTYX [Suspect]
     Active Substance: SECUKINUMAB
     Indication: Arthritis
     Dosage: 150 MG
     Route: 058

REACTIONS (11)
  - Haemorrhage [Unknown]
  - Constipation [Unknown]
  - Disorder of globe [Recovering/Resolving]
  - Weight decreased [Unknown]
  - Nausea [Unknown]
  - Abdominal pain [Unknown]
  - Abdominal pain upper [Unknown]
  - Dizziness [Unknown]
  - Concomitant disease aggravated [Unknown]
  - Headache [Unknown]
  - Product use in unapproved indication [Unknown]
